FAERS Safety Report 5844200-2 (Version None)
Quarter: 2008Q3

REPORT INFORMATION
  Report Type: 
  Country: None (occurrence: None)
  Receive Date: 20080813
  Receipt Date: 20080801
  Transmission Date: 20090109
  Serious: Yes (Other)
  Sender: FDA-Public Use
  Company Number: CN-PFIZER INC-2008055062

PATIENT
  Age: 31 Year
  Sex: Female

DRUGS (6)
  1. SUTENT [Suspect]
     Indication: LUNG NEOPLASM MALIGNANT
     Route: 048
     Dates: start: 20080613, end: 20080708
  2. ANALGESICS [Concomitant]
     Indication: BONE PAIN
  3. I.V. SOLUTIONS [Concomitant]
  4. PLATELETS [Concomitant]
     Indication: PLATELET COUNT DECREASED
  5. BLOOD CELLS, PACKED HUMAN [Concomitant]
     Indication: WHITE BLOOD CELL COUNT DECREASED
  6. ALBUMIN (HUMAN) [Concomitant]
     Indication: BLOOD ALBUMIN DECREASED

REACTIONS (11)
  - ANOREXIA [None]
  - BLOOD ALBUMIN DECREASED [None]
  - BONE PAIN [None]
  - COMA [None]
  - CONSTIPATION [None]
  - GENERALISED OEDEMA [None]
  - HEPATIC FUNCTION ABNORMAL [None]
  - MICTURITION DISORDER [None]
  - PLATELET COUNT DECREASED [None]
  - URINE OUTPUT DECREASED [None]
  - WHITE BLOOD CELL COUNT DECREASED [None]
